FAERS Safety Report 9185410 (Version 1)
Quarter: 2012Q4

REPORT INFORMATION
  Report Type: 
  Country: US (occurrence: US)
  Receive Date: 20121101
  Receipt Date: 20121101
  Transmission Date: 20130627
  Serious: Yes (Hospitalization, Other)
  Sender: FDA-Public Use
  Company Number: US-ELI_LILLY_AND_COMPANY-US201210007506

PATIENT
  Sex: Female

DRUGS (3)
  1. HUMALOG LISPRO [Suspect]
     Indication: TYPE 2 DIABETES MELLITUS
     Dosage: UNK, prn
     Dates: start: 201207
  2. HUMALOG 25% LISPRO, 75% NPL [Suspect]
     Indication: TYPE 2 DIABETES MELLITUS
     Dosage: UNK, unknown
  3. LEVEMIR [Concomitant]

REACTIONS (10)
  - Coronary artery bypass [Recovered/Resolved]
  - Cardiac failure congestive [Not Recovered/Not Resolved]
  - Blood glucose increased [Unknown]
  - Pain in extremity [Not Recovered/Not Resolved]
  - Sciatic nerve injury [Unknown]
  - Ligament calcification [Unknown]
  - Pain [Not Recovered/Not Resolved]
  - Hypoacusis [Not Recovered/Not Resolved]
  - Weight decreased [Recovered/Resolved]
  - Road traffic accident [Recovered/Resolved]
